FAERS Safety Report 7244674-9 (Version None)
Quarter: 2011Q1

REPORT INFORMATION
  Report Type: 
  Country: None (occurrence: None)
  Receive Date: 20110125
  Receipt Date: 20101230
  Transmission Date: 20110831
  Serious: No
  Sender: FDA-Public Use
  Company Number: US-MYLANLABS-2010S1023438

PATIENT
  Sex: Male

DRUGS (3)
  1. CLONIDINE [Suspect]
     Indication: BLOOD PRESSURE INCREASED
     Dosage: CHANGED QWEEK.  PATIENT WEARS (2) CTS AT ONE TIME.
     Route: 062
     Dates: start: 20101220
  2. T4 [Concomitant]
     Indication: THYROID DISORDER
  3. TYLENOL W/ CODEINE NO. 3 [Concomitant]
     Indication: THYROID DISORDER

REACTIONS (2)
  - DRUG INEFFECTIVE [None]
  - BLOOD PRESSURE INCREASED [None]
